FAERS Safety Report 6153816-8 (Version None)
Quarter: 2009Q2

REPORT INFORMATION
  Report Type: 
  Country: None (occurrence: None)
  Receive Date: 20090414
  Receipt Date: 20070830
  Transmission Date: 20091009
  Serious: Yes (Other)
  Sender: FDA-Public Use
  Company Number: US-ASTRAZENECA-2006UW08077

PATIENT
  Age: 18210 Day
  Sex: Female
  Weight: 98.9 kg

DRUGS (15)
  1. SEROQUEL [Suspect]
     Indication: DEPRESSION
     Dosage: 100MG-300MG
     Route: 048
     Dates: start: 20010101, end: 20050101
  2. SEROQUEL [Suspect]
     Indication: DELUSIONAL DISORDER, PERSECUTORY TYPE
     Dosage: 100MG-300MG
     Route: 048
     Dates: start: 20010101, end: 20050101
  3. SEROQUEL [Suspect]
     Indication: SCHIZOPHRENIA
     Dosage: 100MG-300MG
     Route: 048
     Dates: start: 20010101, end: 20050101
  4. ALBUTEROL [Concomitant]
  5. VICODIN ES [Concomitant]
  6. NIFEDICAL [Concomitant]
  7. METFORMIN HCL [Concomitant]
  8. MICARDIS [Concomitant]
  9. ZOLOFT [Concomitant]
  10. LEVAQUIN [Concomitant]
  11. TRAZODONE [Concomitant]
  12. FUROSEMIDE [Concomitant]
  13. MEDROL [Concomitant]
  14. PHENERGAN [Concomitant]
  15. NASONEX [Concomitant]

REACTIONS (13)
  - ABSCESS [None]
  - ARTHRALGIA [None]
  - ASTHMA [None]
  - BACK PAIN [None]
  - BREAST MASS [None]
  - CELLULITIS [None]
  - CHEST PAIN [None]
  - DIABETES MELLITUS [None]
  - ESSENTIAL HYPERTENSION [None]
  - OSTEOARTHRITIS [None]
  - RHINITIS ALLERGIC [None]
  - SEDATION [None]
  - UPPER RESPIRATORY TRACT INFECTION [None]
